FAERS Safety Report 18147967 (Version 2)
Quarter: 2020Q4

REPORT INFORMATION
  Report Type: Spontaneous
  Country: CR (occurrence: CR)
  Receive Date: 20200814
  Receipt Date: 20201007
  Transmission Date: 20210113
  Serious: Yes (Death, Other)
  Sender: FDA-Public Use
  Company Number: CR-ROCHE-2646628

PATIENT
  Age: 76 Year
  Sex: Female
  Weight: 70 kg

DRUGS (3)
  1. ENOXAPARIN [Concomitant]
     Active Substance: ENOXAPARIN
     Dates: start: 20200919, end: 20200927
  2. ACTEMRA [Suspect]
     Active Substance: TOCILIZUMAB
     Indication: COVID-19 PNEUMONIA
     Dosage: 2 DOSES EVERYDAY
     Route: 042
     Dates: start: 20200720, end: 20200721
  3. ACTEMRA [Suspect]
     Active Substance: TOCILIZUMAB
     Indication: CYTOKINE RELEASE SYNDROME
     Dosage: 1200 MG TOTAL MONTHLY DOSE
     Route: 042
     Dates: start: 20200920

REACTIONS (10)
  - Cardiogenic shock [Fatal]
  - Lung hyperinflation [Unknown]
  - Hypertension [Recovered/Resolved]
  - Off label use [Unknown]
  - Acute kidney injury [Fatal]
  - Staphylococcal bacteraemia [Fatal]
  - Left ventricular hypertrophy [Unknown]
  - Bacterial test positive [Unknown]
  - Intentional product use issue [Unknown]
  - Cardiomegaly [Unknown]

NARRATIVE: CASE EVENT DATE: 20200721
